FAERS Safety Report 17795421 (Version 1)
Quarter: 2020Q2

REPORT INFORMATION
  Report Type: Spontaneous
  Country: US (occurrence: US)
  Receive Date: 20200515
  Receipt Date: 20200515
  Transmission Date: 20200714
  Serious: No
  Sender: FDA-Public Use
  Company Number: US-INCYTE CORPORATION-2020IN003421

PATIENT

DRUGS (2)
  1. JAKAFI [Suspect]
     Active Substance: RUXOLITINIB
     Indication: POLYCYTHAEMIA VERA
     Dosage: 10 MILLIGRAM, QD
     Route: 048
     Dates: start: 20170321
  2. JAKAFI [Suspect]
     Active Substance: RUXOLITINIB
     Dosage: 20 MILLIGRAM, QD (TAKES THE DOSE IN PM WITH FOOD)
     Route: 048
     Dates: start: 20170321

REACTIONS (6)
  - White blood cell count abnormal [Unknown]
  - Hypertension [Unknown]
  - Platelet count abnormal [Unknown]
  - Diplopia [Unknown]
  - Dizziness [Unknown]
  - Headache [Unknown]
